FAERS Safety Report 7902398-6 (Version None)
Quarter: 2011Q4

REPORT INFORMATION
  Report Type: 
  Country: None (occurrence: None)
  Receive Date: 20111108
  Receipt Date: 20111103
  Transmission Date: 20120403
  Serious: No
  Sender: FDA-Public Use
  Company Number: PHHO2011TR17925

PATIENT
  Sex: Female
  Weight: 13.5 kg

DRUGS (3)
  1. METHOTREXATE SODIUM [Concomitant]
     Indication: JUVENILE ARTHRITIS
     Dosage: 12.5 MG, WEEK
     Dates: start: 20110912
  2. ILARIS [Suspect]
     Indication: JUVENILE ARTHRITIS
     Dosage: 150 MG, UNK
     Route: 048
     Dates: start: 20091204
  3. DELTACORTRIL [Concomitant]
     Indication: JUVENILE ARTHRITIS
     Dosage: 2.5 MG, DAILY
     Dates: start: 20110921

REACTIONS (1)
  - BLOOD ALKALINE PHOSPHATASE INCREASED [None]
